FAERS Safety Report 8853367 (Version 2)
Quarter: 2012Q4

REPORT INFORMATION
  Report Type: 
  Country: IN (occurrence: IN)
  Receive Date: 20121022
  Receipt Date: 20121024
  Transmission Date: 20130627
  Serious: Yes (Hospitalization)
  Sender: FDA-Public Use
  Company Number: IN-B.I. PHARMACEUTICALS,INC./RIDGEFIELD-2012-CS-01460IG

PATIENT
  Age: 75 Year
  Sex: Male
  Weight: 80 kg

DRUGS (7)
  1. PRADAXA [Suspect]
     Indication: ATRIAL FIBRILLATION
     Dosage: 220 mg
     Route: 048
     Dates: start: 201204, end: 20121013
  2. METOPROLOL [Concomitant]
  3. TELMISARTAN [Concomitant]
  4. ATORVASTATIN [Concomitant]
  5. GLIMEPIRIDE [Concomitant]
  6. FIZODON [Concomitant]
  7. NEUROBION [Concomitant]

REACTIONS (1)
  - Lacunar infarction [Recovered/Resolved]
